FAERS Safety Report 7591110-9 (Version None)
Quarter: 2011Q3

REPORT INFORMATION
  Report Type: 
  Country: None (occurrence: None)
  Receive Date: 20110705
  Receipt Date: 20110623
  Transmission Date: 20111222
  Serious: Yes (Other)
  Sender: FDA-Public Use
  Company Number: US-ASTRAZENECA-2011SE03129

PATIENT
  Age: 61 Year
  Sex: Male

DRUGS (1)
  1. NEXIUM [Suspect]
     Route: 048

REACTIONS (5)
  - NEOPLASM MALIGNANT [None]
  - CHEMOTHERAPY [None]
  - GASTROOESOPHAGEAL REFLUX DISEASE [None]
  - RADIOTHERAPY [None]
  - TONGUE NEOPLASM MALIGNANT STAGE UNSPECIFIED [None]
